FAERS Safety Report 5678980-6 (Version None)
Quarter: 2008Q1

REPORT INFORMATION
  Report Type: 
  Country: None (occurrence: None)
  Receive Date: 20080325
  Receipt Date: 20080320
  Transmission Date: 20080703
  Serious: Yes (Death)
  Sender: FDA-Public Use
  Company Number: DE-ABBOTT-08P-062-0443714-00

PATIENT
  Sex: Female
  Weight: 70 kg

DRUGS (15)
  1. ZEMPLAR [Suspect]
     Indication: DRUG USE FOR UNKNOWN INDICATION
     Route: 042
     Dates: start: 20060915, end: 20070208
  2. CYANOCOBALAMIN [Concomitant]
     Indication: DRUG USE FOR UNKNOWN INDICATION
     Dates: start: 20050401
  3. SODIUM FERRIGLUCONATE [Concomitant]
     Indication: DRUG USE FOR UNKNOWN INDICATION
     Dates: start: 20050601
  4. FOLIC ACID [Concomitant]
     Indication: DRUG USE FOR UNKNOWN INDICATION
     Dates: start: 20050801
  5. DARBEPOETIN ALFA [Concomitant]
     Indication: DRUG USE FOR UNKNOWN INDICATION
     Dates: start: 20060601, end: 20061019
  6. DARBEPOETIN ALFA [Concomitant]
     Dates: start: 20061019, end: 20070115
  7. DARBEPOETIN ALFA [Concomitant]
     Dates: start: 20070115
  8. MADOPAR [Concomitant]
     Indication: DRUG USE FOR UNKNOWN INDICATION
     Dates: start: 20041101
  9. MADOPAR [Concomitant]
     Dosage: RESTEX RETARD
     Dates: start: 20041101
  10. BISOPROLOL FUMARATE [Concomitant]
     Indication: DRUG USE FOR UNKNOWN INDICATION
     Dates: start: 20061230
  11. OMEPRAZOLE [Concomitant]
     Indication: DRUG USE FOR UNKNOWN INDICATION
     Dates: start: 20050401
  12. CLOPIDOGREL [Concomitant]
     Indication: DRUG USE FOR UNKNOWN INDICATION
     Dates: start: 20051101
  13. TOREMIFEN [Concomitant]
     Indication: DRUG USE FOR UNKNOWN INDICATION
     Dates: start: 20051101
  14. FLUOXETINE HYDROCHLORIDE [Concomitant]
     Indication: DRUG USE FOR UNKNOWN INDICATION
     Dates: start: 20061013, end: 20061024
  15. VANCOMYCIN [Concomitant]
     Indication: DRUG USE FOR UNKNOWN INDICATION
     Dates: start: 20061123, end: 20061201

REACTIONS (2)
  - CARDIAC ARREST [None]
  - HYPERCALCAEMIA [None]
